FAERS Safety Report 9471154 (Version 3)
Quarter: 2013Q3

REPORT INFORMATION
  Report Type: Spontaneous
  Country: FI (occurrence: FI)
  Receive Date: 20130822
  Receipt Date: 20130904
  Transmission Date: 20140515
  Serious: Yes (Other)
  Sender: FDA-Public Use
  Company Number: FI-BAYER-2013-070372

PATIENT
  Age: 31 Year
  Sex: Female

DRUGS (4)
  1. MIRENA [Suspect]
     Indication: CONTRACEPTION
     Dosage: 20 ?G, CONT
     Route: 015
     Dates: start: 201209, end: 20130625
  2. FEMODEN [Suspect]
  3. MICROGYNON [Suspect]
  4. TRIKVILAR [Suspect]

REACTIONS (6)
  - Uterine infection [None]
  - Gingivitis [None]
  - Vaginal discharge [None]
  - Metrorrhagia [None]
  - Metrorrhagia [None]
  - Mood altered [None]
